FAERS Safety Report 8822361 (Version 2)
Quarter: 2012Q4

REPORT INFORMATION
  Report Type: 
  Country: GB (occurrence: GB)
  Receive Date: 20121003
  Receipt Date: 20121011
  Transmission Date: 20130627
  Serious: Yes (Hospitalization, Other)
  Sender: FDA-Public Use
  Company Number: PHFR2012GB005197

PATIENT
  Age: 62 Year
  Sex: Male

DRUGS (1)
  1. CLOZARIL [Suspect]
     Indication: SCHIZOPHRENIA
     Dates: start: 20120910

REACTIONS (6)
  - Chest pain [Unknown]
  - Myocarditis [Unknown]
  - Troponin increased [Unknown]
  - Viral infection [Unknown]
  - White blood cell count increased [Unknown]
  - Neutrophil count increased [Unknown]
